FAERS Safety Report 8018691-5 (Version None)
Quarter: 2012Q1

REPORT INFORMATION
  Report Type: 
  Country: None (occurrence: None)
  Receive Date: 20120103
  Receipt Date: 20120103
  Transmission Date: 20120608
  Serious: No
  Sender: FDA-Public Use
  Company Number: None

PATIENT
  Age: 42 Year
  Sex: Male
  Weight: 83.914 kg

DRUGS (3)
  1. PLAVIX [Suspect]
     Indication: ACUTE MYOCARDIAL INFARCTION
     Dosage: 75 MG
     Route: 048
     Dates: start: 20030828, end: 20111231
  2. PLAVIX [Suspect]
     Indication: CARDIAC FAILURE CONGESTIVE
     Dosage: 75 MG
     Route: 048
     Dates: start: 20030828, end: 20111231
  3. ASPIRIN [Concomitant]
     Dosage: 325 MG OTC ASPRIN EC
     Route: 048
     Dates: start: 20030828, end: 20111231

REACTIONS (5)
  - WEIGHT DECREASED [None]
  - SINUS BRADYCARDIA [None]
  - URINE COLOUR ABNORMAL [None]
  - WEIGHT INCREASED [None]
  - HAEMATOCHEZIA [None]
